FAERS Safety Report 8242463-X (Version None)
Quarter: 2012Q1

REPORT INFORMATION
  Report Type: 
  Country: None (occurrence: None)
  Receive Date: 20120329
  Receipt Date: 20120319
  Transmission Date: 20120608
  Serious: Yes (Other)
  Sender: FDA-Public Use
  Company Number: JP-ACCORD-012836

PATIENT
  Age: 49 Year
  Sex: Female

DRUGS (2)
  1. ANASTROZOLE [Suspect]
     Indication: BREAST CANCER RECURRENT
  2. VINORELBINE [Suspect]
     Indication: BREAST CANCER RECURRENT

REACTIONS (1)
  - ADVERSE REACTION [None]
